FAERS Safety Report 6929278-7 (Version None)
Quarter: 2010Q3

REPORT INFORMATION
  Report Type: 
  Country: None (occurrence: None)
  Receive Date: 20100811
  Receipt Date: 20100519
  Transmission Date: 20110219
  Serious: Yes (Other)
  Sender: FDA-Public Use
  Company Number: 011653

PATIENT
  Sex: Male
  Weight: 68 kg

DRUGS (3)
  1. NEUPRO [Suspect]
     Indication: PARKINSON'S DISEASE
     Dosage: (TRANSDERMAL) ; (INCREASED DOSE TRANSDERMAL)
     Route: 062
     Dates: start: 20100201, end: 20100201
  2. NEUPRO [Suspect]
     Indication: PARKINSON'S DISEASE
     Dosage: (TRANSDERMAL) ; (INCREASED DOSE TRANSDERMAL)
     Route: 062
     Dates: start: 20100201, end: 20100206
  3. SINEMET [Suspect]
     Indication: PARKINSON'S DISEASE
     Dosage: (125 MG TID ORAL)
     Route: 048
     Dates: start: 20100129, end: 20100203

REACTIONS (1)
  - DELIRIUM [None]
